FAERS Safety Report 5219591-6 (Version None)
Quarter: 2007Q1

REPORT INFORMATION
  Report Type: 
  Country: None (occurrence: None)
  Receive Date: 20070125
  Receipt Date: 20070111
  Transmission Date: 20070707
  Serious: Yes (Other)
  Sender: FDA-Public Use
  Company Number: FR-SHR-FR-2007-001274

PATIENT
  Age: 51 Year
  Sex: Female

DRUGS (4)
  1. FLUDARA (UNK. FORMULATION) [Suspect]
     Indication: ACUTE MYELOID LEUKAEMIA
     Dosage: 90 MG/M2, UNK
  2. CYCLOSPORINE [Concomitant]
     Indication: PROPHYLAXIS AGAINST GRAFT VERSUS HOST DISEASE
  3. MYCOPHENOLATE MOFETIL [Concomitant]
     Indication: PROPHYLAXIS AGAINST GRAFT VERSUS HOST DISEASE
  4. CORTICOSTEROIDS [Concomitant]
     Indication: CHRONIC GRAFT VERSUS HOST DISEASE

REACTIONS (3)
  - ACUTE MYELOID LEUKAEMIA RECURRENT [None]
  - APLASIA PURE RED CELL [None]
  - CHRONIC GRAFT VERSUS HOST DISEASE [None]
